FAERS Safety Report 7008011-7 (Version None)
Quarter: 2010Q3

REPORT INFORMATION
  Report Type: 
  Country: None (occurrence: None)
  Receive Date: 20100922
  Receipt Date: 20100914
  Transmission Date: 20110219
  Serious: Yes (Hospitalization)
  Sender: FDA-Public Use
  Company Number: FR-ABBOTT-10P-056-0668762-00

PATIENT
  Sex: Female

DRUGS (8)
  1. HUMIRA [Suspect]
     Indication: PSORIASIS
     Dosage: 80 MG AS LOADING CHARGE AND THEN 40 MG EOW
     Dates: start: 20080131
  2. HUMIRA [Suspect]
     Dates: end: 20090901
  3. METHOTREXATE [Concomitant]
     Indication: PSORIASIS
     Dosage: 17.5-25 MG PER WEEK
     Dates: start: 20020701, end: 20040401
  4. METHOTREXATE [Concomitant]
     Dosage: 25 MG WEEKLY
     Dates: start: 20040601, end: 20050601
  5. METHOTREXATE [Concomitant]
     Dosage: 7.5MG PER WEEK
     Dates: start: 20080601
  6. METHOTREXATE [Concomitant]
     Dosage: 15 MG PER WEEK
     Dates: start: 20080801
  7. METHOTREXATE [Concomitant]
     Dosage: 10 MG PER WEEK
     Dates: start: 20081201
  8. METHOTREXATE [Concomitant]
     Dosage: 15 MG PER WEEK
     Dates: start: 20090201

REACTIONS (2)
  - OPTIC NEURITIS [None]
  - VISUAL ACUITY REDUCED [None]
